FAERS Safety Report 11079402 (Version 1)
Quarter: 2015Q2

REPORT INFORMATION
  Report Type: Spontaneous
  Country: CN (occurrence: None)
  Receive Date: 20150428
  Receipt Date: 20150428
  Transmission Date: 20150821
  Serious: Yes (Hospitalization)
  Sender: FDA-Public Use
  Company Number: CN-2012VAL000259

PATIENT
  Age: 73 Year
  Sex: Female

DRUGS (5)
  1. FOSAMAX [Suspect]
     Active Substance: ALENDRONATE SODIUM
     Indication: OSTEOPOROSIS
     Dosage: DF, ORAL
     Route: 048
     Dates: start: 201111
  2. MELATONIN [Concomitant]
     Active Substance: MELATONIN
  3. ZOLEDRONIC ACID [Concomitant]
     Active Substance: ZOLEDRONIC ACID
  4. ROCALTROL [Suspect]
     Active Substance: CALCITRIOL
     Indication: OSTEOPOROSIS
     Route: 048
     Dates: start: 2004
  5. DEXAMETHASONE. [Suspect]
     Active Substance: DEXAMETHASONE
     Indication: SUDDEN HEARING LOSS
     Route: 048
     Dates: start: 201106

REACTIONS (9)
  - Hip fracture [None]
  - Groin pain [None]
  - Arthralgia [None]
  - Sudden hearing loss [None]
  - No therapeutic response [None]
  - Blood glucose increased [None]
  - Bedridden [None]
  - Cerumen impaction [None]
  - Abdominal pain upper [None]

NARRATIVE: CASE EVENT DATE: 201106
